FAERS Safety Report 24032358 (Version 1)
Quarter: 2024Q3

REPORT INFORMATION
  Report Type: Spontaneous
  Country: ES (occurrence: ES)
  Receive Date: 20240701
  Receipt Date: 20240701
  Transmission Date: 20241017
  Serious: Yes (Death, Hospitalization, Other)
  Sender: NOVITIUM PHARMA
  Company Number: ES-NOVITIUMPHARMA-2024ESNVP01111

PATIENT
  Age: 54 Year
  Sex: Female

DRUGS (6)
  1. CLORAZEPATE DIPOTASSIUM [Suspect]
     Active Substance: CLORAZEPATE DIPOTASSIUM
     Indication: Product used for unknown indication
  2. ACETAMINOPHEN [Concomitant]
     Active Substance: ACETAMINOPHEN
     Indication: Product used for unknown indication
  3. DICLOFENAC [Concomitant]
     Active Substance: DICLOFENAC
     Indication: Product used for unknown indication
  4. AMOXICILLIN [Concomitant]
     Active Substance: AMOXICILLIN
     Indication: Product used for unknown indication
  5. LORMETAZEPAM [Concomitant]
     Active Substance: LORMETAZEPAM
     Indication: Product used for unknown indication
  6. DEXKETOPROFEN [Concomitant]
     Active Substance: DEXKETOPROFEN
     Indication: Product used for unknown indication

REACTIONS (11)
  - Metabolic acidosis [Fatal]
  - Hyperglycaemia [Fatal]
  - Autoimmune disorder [Fatal]
  - Coagulopathy [Fatal]
  - Acute kidney injury [Fatal]
  - Renal failure [Fatal]
  - Pancreatic failure [Fatal]
  - Hepatic failure [Fatal]
  - Haemodynamic instability [Fatal]
  - Shock [Fatal]
  - Toxicity to various agents [Fatal]
